FAERS Safety Report 24251436 (Version 1)
Quarter: 2024Q3

REPORT INFORMATION
  Report Type: Spontaneous
  Country: PT (occurrence: PT)
  Receive Date: 20240826
  Receipt Date: 20240826
  Transmission Date: 20241016
  Serious: Yes (Death, Life-Threatening, Hospitalization, Other)
  Sender: MERCK
  Company Number: PT-009507513-2408PRT008137

PATIENT
  Age: 86 Year
  Sex: Male

DRUGS (2)
  1. BCG LIVE [Suspect]
     Active Substance: BACILLUS CALMETTE-GUERIN SUBSTRAIN TICE LIVE ANTIGEN
     Indication: Bladder transitional cell carcinoma
     Dosage: LAST INSTILLATION ONE MONTH BEFORE
     Route: 043
  2. BCG LIVE [Suspect]
     Active Substance: BACILLUS CALMETTE-GUERIN SUBSTRAIN TICE LIVE ANTIGEN
     Indication: Neoplasm prostate

REACTIONS (4)
  - Disseminated Bacillus Calmette-Guerin infection [Fatal]
  - Respiratory failure [Fatal]
  - Circulatory collapse [Fatal]
  - Neurological decompensation [Fatal]
